FAERS Safety Report 8954308 (Version 5)
Quarter: 2013Q3

REPORT INFORMATION
  Report Type: Report from Study
  Country: IT (occurrence: IT)
  Receive Date: 20121207
  Receipt Date: 20130701
  Transmission Date: 20140515
  Serious: Yes (Hospitalization, Other)
  Sender: FDA-Public Use
  Company Number: IT-ABBOTT-12P-083-1015266-00

PATIENT
  Age: 36 Year
  Sex: Female
  Weight: 50 kg

DRUGS (4)
  1. HUMIRA [Suspect]
     Indication: CROHN^S DISEASE
     Route: 058
     Dates: start: 20081118, end: 20111007
  2. HUMIRA [Suspect]
     Route: 058
     Dates: start: 20120911
  3. DELTACORTENE [Concomitant]
     Indication: INFLAMMATORY BOWEL DISEASE
     Dates: start: 20111010
  4. DELTACORTENE [Concomitant]
     Indication: INTESTINAL STENOSIS

REACTIONS (1)
  - Large intestinal stenosis [Recovered/Resolved]
